FAERS Safety Report 17940851 (Version 3)
Quarter: 2020Q3

REPORT INFORMATION
  Report Type: Report from Study
  Country: CA (occurrence: CA)
  Receive Date: 20200624
  Receipt Date: 20200908
  Transmission Date: 20201103
  Serious: Yes (Other)
  Sender: FDA-Public Use
  Company Number: CA-JNJFOC-20200229292

PATIENT
  Age: 57 Year
  Sex: Female
  Weight: 70 kg

DRUGS (4)
  1. REMICADE [Suspect]
     Active Substance: INFLIXIMAB
     Indication: COLITIS ULCERATIVE
     Route: 042
     Dates: start: 20180703
  2. REMICADE [Suspect]
     Active Substance: INFLIXIMAB
     Indication: OSTEOPOROSIS
     Route: 042
  3. PREDNISONE. [Suspect]
     Active Substance: PREDNISONE
     Indication: COLITIS ULCERATIVE
     Dosage: 40 MG A DAY FOR 30 DAYS
     Route: 065
     Dates: start: 2020
  4. ZOLEDRONIC ACID [Concomitant]
     Active Substance: ZOLEDRONIC ACID
     Indication: OSTEOPOROSIS
     Dosage: AT THE TIME OF REPORT: 18?JUN?2020, THE PHYSICIAN WANTED HER TO HAVE HER ZOLEDRONIC ACID INFUSION
     Route: 065

REACTIONS (3)
  - Colitis ulcerative [Not Recovered/Not Resolved]
  - Influenza [Unknown]
  - Insomnia [Unknown]

NARRATIVE: CASE EVENT DATE: 2020
